FAERS Safety Report 4498695-X (Version None)
Quarter: 2004Q3

REPORT INFORMATION
  Report Type: 
  Country: None (occurrence: None)
  Receive Date: 20040927
  Receipt Date: 20040618
  Transmission Date: 20050211
  Serious: No
  Sender: FDA-Public Use
  Company Number: USA040670560

PATIENT
  Age: 31 Year
  Sex: Male
  Weight: 91 kg

DRUGS (5)
  1. STRATTERA [Suspect]
     Indication: ATTENTION DEFICIT/HYPERACTIVITY DISORDER
     Dosage: 40 MG IN THE EVENING
  2. PROZAC [Concomitant]
  3. RISPERDAL [Concomitant]
  4. ZOLOFT [Concomitant]
  5. LIBRIUM [Concomitant]

REACTIONS (3)
  - DECREASED INTEREST [None]
  - FATIGUE [None]
  - FLAT AFFECT [None]
